FAERS Safety Report 9115399 (Version 2)
Quarter: 2014Q2

REPORT INFORMATION
  Report Type: Spontaneous
  Country: PR (occurrence: US)
  Receive Date: 20130225
  Receipt Date: 20140521
  Transmission Date: 20141212
  Serious: No
  Sender: FDA-Public Use
  Company Number: US-PFIZER INC-2013015050

PATIENT
  Sex: Male

DRUGS (1)
  1. PRISTIQ [Suspect]
     Indication: DEPRESSION
     Dosage: 50 MG, 1X/DAY
     Route: 048

REACTIONS (7)
  - Intentional product misuse [Unknown]
  - Anxiety [Unknown]
  - Impulsive behaviour [Unknown]
  - Feeling abnormal [Unknown]
  - Irritability [Unknown]
  - Nervousness [Unknown]
  - Emotional distress [Unknown]
